FAERS Safety Report 16986995 (Version 1)
Quarter: 2019Q4

REPORT INFORMATION
  Report Type: Spontaneous
  Country: FR (occurrence: FR)
  Receive Date: 20191102
  Receipt Date: 20191102
  Transmission Date: 20200122
  Serious: Yes (Hospitalization)
  Sender: FDA-Public Use
  Company Number: FR-TEVA-2019-FR-1130324

PATIENT
  Age: 66 Year
  Sex: Female
  Weight: 81.7 kg

DRUGS (8)
  1. ASPIRINE PROTECT 100 MG, COMPRIM? GASTRO-R?SISTANT [Concomitant]
     Active Substance: ASPIRIN
     Indication: PROPHYLAXIS
     Dosage: 1 DOSAGE FORMS 1 DAYS
     Route: 048
  2. LASILIX 40 MG, COMPRIM? S?CABLE [Interacting]
     Active Substance: FUROSEMIDE
     Indication: HYPERTENSION
     Dosage: 1 DOSAGE FORMS 1 DAYS
     Route: 048
     Dates: end: 20190714
  3. JANUVIA [Concomitant]
     Active Substance: SITAGLIPTIN PHOSPHATE
     Indication: TYPE 2 DIABETES MELLITUS
     Dosage: 1 DOSAGE FORMS 1 DAYS
     Route: 048
     Dates: end: 20190714
  4. TAHOR [Concomitant]
     Active Substance: ATORVASTATIN CALCIUM
     Indication: DYSLIPIDAEMIA
     Dosage: 1 DOSAGE FORMS 1 DAYS
     Route: 048
     Dates: end: 20190714
  5. COAPROVEL 300 MG/25 MG, COMPRIM? PELLICUL? [Interacting]
     Active Substance: HYDROCHLOROTHIAZIDE\IRBESARTAN
     Indication: HYPERTENSION
     Dosage: 1 DOSAGE FORMS 1 DAYS
     Route: 048
     Dates: end: 20190714
  6. DIAMICRON 60 MG, COMPRIM? S?CABLE ? LIB?RATION MODIFI?E [Concomitant]
     Active Substance: GLICLAZIDE
     Indication: TYPE 2 DIABETES MELLITUS
     Dosage: 1 DOSAGE FORMS 1 DAYS
     Route: 048
     Dates: end: 20190714
  7. LYSANXIA 10 MG, COMPRIM? [Concomitant]
     Active Substance: PRAZEPAM
     Dosage: 1 DOSAGE FORMS 1 DAYS
     Route: 048
     Dates: end: 20190714
  8. NAPROXENE [Suspect]
     Active Substance: NAPROXEN
     Indication: PAIN
     Dosage: UNKNOWN
     Route: 048
     Dates: start: 201907, end: 201907

REACTIONS (2)
  - Acute kidney injury [Recovered/Resolved]
  - Drug interaction [Recovered/Resolved]

NARRATIVE: CASE EVENT DATE: 20190714
